FAERS Safety Report 5633745-6 (Version None)
Quarter: 2008Q1

REPORT INFORMATION
  Report Type: 
  Country: None (occurrence: None)
  Receive Date: 20080219
  Receipt Date: 20080203
  Transmission Date: 20080703
  Serious: Yes (Other)
  Sender: FDA-Public Use
  Company Number: 230001M08ISR

PATIENT
  Age: 48 Year
  Sex: Male

DRUGS (7)
  1. REBIF [Suspect]
     Indication: RELAPSING-REMITTING MULTIPLE SCLEROSIS
     Dosage: 8.8 MG, ONCE, SUBCUTANEOUS
     Route: 058
     Dates: start: 20080124, end: 20080124
  2. RAFASSAL (AMINOSALICYLIC ACID) [Concomitant]
  3. MICROPIN (ACETYLSALICYLIC ACID) [Concomitant]
  4. OMEPRADEX (OMEPRADEX) [Concomitant]
  5. PRAVASTATIN [Concomitant]
  6. BEDUDEKA (VITAMIN B12 NOS) [Concomitant]
  7. ACETAMINOPHEN [Concomitant]

REACTIONS (1)
  - DIARRHOEA HAEMORRHAGIC [None]
